FAERS Safety Report 17433522 (Version 1)
Quarter: 2020Q1

REPORT INFORMATION
  Report Type: Spontaneous
  Country: FR (occurrence: FR)
  Receive Date: 20200219
  Receipt Date: 20200219
  Transmission Date: 20200409
  Serious: Yes (Life-Threatening)
  Sender: FDA-Public Use
  Company Number: FR-TEVA-2020-FR-1187272

PATIENT
  Age: 61 Year
  Sex: Female
  Weight: 48 kg

DRUGS (15)
  1. CARBOPLATINE [Suspect]
     Active Substance: CARBOPLATIN
     Indication: ADENOCARCINOMA
     Dosage: 480 MG
     Route: 042
     Dates: start: 20191128, end: 20191220
  2. OXYCODONE [Suspect]
     Active Substance: OXYCODONE
     Dosage: + BOLUS 15 MG ,60 MG
     Route: 048
     Dates: start: 20191209, end: 20191217
  3. ZOMETA [Suspect]
     Active Substance: ZOLEDRONIC ACID
     Indication: OSTEOPOROSIS
     Dosage: 4 MG PER 21 DAYS
     Route: 042
     Dates: start: 20191207, end: 20191228
  4. OXYCODONE [Suspect]
     Active Substance: OXYCODONE
     Dosage: + 10 MG BOLUS, 30 , MG PER  12 HR
     Route: 048
     Dates: start: 20191205, end: 20191205
  5. KEYTRUDA [Suspect]
     Active Substance: PEMBROLIZUMAB
     Indication: ADENOCARCINOMA
     Dosage: 200 MG
     Route: 042
     Dates: start: 20191128, end: 20191220
  6. PARACETAMOL [Suspect]
     Active Substance: ACETAMINOPHEN
     Indication: PAIN MANAGEMENT
     Dosage: 4 GM PER DAY
     Route: 048
     Dates: end: 20200107
  7. TEGRETOL [Suspect]
     Active Substance: CARBAMAZEPINE
     Dosage: MORNING AND EVENING, 600 MG PER DAY
     Route: 048
     Dates: start: 20191224, end: 20200107
  8. LOVENOX [Concomitant]
     Active Substance: ENOXAPARIN SODIUM
     Indication: THROMBOSIS PROPHYLAXIS
     Route: 058
     Dates: start: 20191204
  9. OXYCODONE [Suspect]
     Active Substance: OXYCODONE
     Indication: PAIN MANAGEMENT
     Dosage: + 10 MG OF BOLUS THEN MORPHINE RELAY ON 01/02/2020, 4.8 MG PER HR
     Route: 048
     Dates: start: 20191209, end: 20191217
  10. TEGRETOL [Suspect]
     Active Substance: CARBAMAZEPINE
     Dosage: MORNING AND EVENING, 200 MG PER DAY
     Dates: start: 20200107
  11. CARBOPLATINE [Suspect]
     Active Substance: CARBOPLATIN
     Dosage: 480 MG
     Route: 042
     Dates: start: 20191128, end: 20191220
  12. ALIMTA [Suspect]
     Active Substance: PEMETREXED DISODIUM
     Indication: ADENOCARCINOMA
     Dosage: 650 MG
     Route: 042
     Dates: start: 20191128, end: 20191220
  13. TEGRETOL [Suspect]
     Active Substance: CARBAMAZEPINE
     Dosage: MORNING AND EVENING, 400 MG PER DAY
     Route: 048
     Dates: start: 20191216, end: 20191224
  14. ALIMTA [Suspect]
     Active Substance: PEMETREXED DISODIUM
     Dosage: 480 MG
     Route: 042
     Dates: start: 20191128, end: 20191220
  15. TEGRETOL [Suspect]
     Active Substance: CARBAMAZEPINE
     Indication: PAIN MANAGEMENT
     Dosage: MORNING AND EVENING, 200 MG PER DAY
     Route: 048
     Dates: start: 20191213, end: 20191216

REACTIONS (2)
  - Hepatic function abnormal [Not Recovered/Not Resolved]
  - Hepatitis cholestatic [Not Recovered/Not Resolved]

NARRATIVE: CASE EVENT DATE: 20191223
